FAERS Safety Report 6428825-1 (Version None)
Quarter: 2009Q4

REPORT INFORMATION
  Report Type: 
  Country: None (occurrence: None)
  Receive Date: 20091104
  Receipt Date: 20091104
  Transmission Date: 20100525
  Serious: No
  Sender: FDA-Public Use
  Company Number: None

PATIENT
  Age: 57 Year
  Sex: Female
  Weight: 53.0709 kg

DRUGS (1)
  1. ZICAM ? ? [Suspect]
     Indication: INFLUENZA
     Dosage: 5 DAYS,, NOT SURE
     Dates: start: 20070309, end: 20070314

REACTIONS (2)
  - AGEUSIA [None]
  - ANOSMIA [None]
